FAERS Safety Report 23611392 (Version 1)
Quarter: 2024Q1

REPORT INFORMATION
  Report Type: Spontaneous
  Country: GB (occurrence: GB)
  Receive Date: 20240308
  Receipt Date: 20240308
  Transmission Date: 20240410
  Serious: Yes (Other)
  Sender: FDA-Public Use
  Company Number: None

PATIENT
  Age: 40 Year
  Sex: Female
  Weight: 100 kg

DRUGS (14)
  1. DOXYCYCLINE [Suspect]
     Active Substance: DOXYCYCLINE
     Indication: Product used for unknown indication
     Dosage: TAKE TWO CAPSULES NOW AND THEN TAKE ONE CAPSULE ONCE A DAY FOR THE NEXT 4 DAYS
     Route: 065
     Dates: start: 20240221, end: 20240221
  2. AMOXICILLIN [Concomitant]
     Active Substance: AMOXICILLIN
     Dosage: 1 DOSAGE FORM, TID
     Route: 065
     Dates: start: 20240103, end: 20240108
  3. CLARITHROMYCIN [Concomitant]
     Active Substance: CLARITHROMYCIN
     Dosage: 1 DOSAGE FORM, BID (EVERY 12 HOURS)
     Route: 065
     Dates: start: 20240111, end: 20240118
  4. BECLOMETHASONE DIPROPIONATE [Concomitant]
     Active Substance: BECLOMETHASONE DIPROPIONATE
     Dosage: 2 DOSAGE FORM, BID
     Route: 055
     Dates: start: 20230918, end: 20231220
  5. AMOXICILLIN\CLAVULANATE POTASSIUM [Concomitant]
     Active Substance: AMOXICILLIN\CLAVULANATE POTASSIUM
     Dosage: 1 DOSAGE FORM, TID
     Route: 065
     Dates: start: 20240124, end: 20240131
  6. ELOCON [Concomitant]
     Active Substance: MOMETASONE FUROATE
     Dosage: 1 DOSAGE FORM, QD (APPLY DAILY FOR UP TO 6 WEEKS FOR SEVERE FLARE UP)
     Route: 065
     Dates: start: 20230918
  7. ERYTHROMYCIN [Concomitant]
     Active Substance: ERYTHROMYCIN
     Dosage: 1 DOSAGE FORM, QID
     Route: 065
     Dates: start: 20240221
  8. FLUCLOXACILLIN [Concomitant]
     Active Substance: FLUCLOXACILLIN
     Dosage: 1 DOSAGE FORM, QID
     Route: 065
     Dates: start: 20231214, end: 20231221
  9. BECLOMETHASONE\FORMOTEROL [Concomitant]
     Active Substance: BECLOMETHASONE\FORMOTEROL
     Dosage: 2 DOSAGE FORM, BID, TWO PUFFS
     Route: 065
     Dates: start: 20231220
  10. OXYTETRACYCLINE [Concomitant]
     Active Substance: OXYTETRACYCLINE
     Dosage: 1 DOSAGE FORM, QID
     Route: 065
     Dates: start: 20240129, end: 20240205
  11. PREDNISOLONE [Concomitant]
     Active Substance: PREDNISOLONE
     Dosage: 8 DOSAGE FORM, QD (FOR 5 DAYS)
     Route: 065
     Dates: start: 20240215, end: 20240220
  12. ALBUTEROL [Concomitant]
     Active Substance: ALBUTEROL
     Dosage: 2 DOSAGE FORM (AS NECESSARY)
     Route: 055
     Dates: start: 20231002
  13. SERTRALINE [Concomitant]
     Active Substance: SERTRALINE HYDROCHLORIDE
     Dosage: 2 DOSAGE FORM, QD
     Route: 065
     Dates: start: 20230131
  14. Zerobase [Concomitant]
     Dosage: APPLY TO SKIN FREQUENTLY AND LIBERALLY, AS OFTE...
     Route: 061
     Dates: start: 20221121

REACTIONS (1)
  - Wheezing [Recovered/Resolved]
